FAERS Safety Report 13658505 (Version 4)
Quarter: 2018Q1

REPORT INFORMATION
  Report Type: Spontaneous
  Country: US (occurrence: US)
  Receive Date: 20170616
  Receipt Date: 20180330
  Transmission Date: 20180508
  Serious: No
  Sender: FDA-Public Use
  Company Number: US-PFIZER INC-2017261051

PATIENT
  Age: 59 Year
  Sex: Female

DRUGS (3)
  1. XELJANZ XR [Suspect]
     Active Substance: TOFACITINIB CITRATE
     Indication: RHEUMATOID ARTHRITIS
     Dosage: 11 MG, 1X/DAY
     Route: 048
  2. VALTREX [Concomitant]
     Active Substance: VALACYCLOVIR HYDROCHLORIDE
     Dosage: 500 MG, DAILY
  3. XELJANZ XR [Suspect]
     Active Substance: TOFACITINIB CITRATE
     Dosage: 11 MG, 2X/DAY

REACTIONS (10)
  - Prescribed overdose [Unknown]
  - Fatigue [Not Recovered/Not Resolved]
  - Back pain [Unknown]
  - Candida infection [Unknown]
  - Hypoaesthesia [Unknown]
  - Condition aggravated [Not Recovered/Not Resolved]
  - Urinary tract infection [Unknown]
  - Pleuritic pain [Unknown]
  - Feeling abnormal [Unknown]
  - Herpes simplex [Unknown]
